FAERS Safety Report 9605301 (Version 1)
Quarter: 2013Q4

REPORT INFORMATION
  Report Type: Spontaneous
  Country: GB (occurrence: GB)
  Receive Date: 20131008
  Receipt Date: 20131008
  Transmission Date: 20140711
  Serious: Yes (Life-Threatening, Hospitalization, Other)
  Sender: FDA-Public Use
  Company Number: GB-UCBSA-099161

PATIENT
  Age: 60 Year
  Sex: Female

DRUGS (6)
  1. CIMZIA [Suspect]
     Indication: RHEUMATOID ARTHRITIS
     Route: 058
     Dates: start: 20110708, end: 20130301
  2. CALCIUM AND VITAMIN D3 [Concomitant]
  3. EVOREL CONTI [Concomitant]
  4. METHOTREXATE [Concomitant]
     Route: 058
  5. PREDNISONE [Concomitant]
  6. THYROXINE [Concomitant]

REACTIONS (1)
  - Intraductal proliferative breast lesion [Unknown]
